FAERS Safety Report 11191631 (Version 3)
Quarter: 2016Q3

REPORT INFORMATION
  Report Type: Spontaneous
  Country: GB (occurrence: GB)
  Receive Date: 20150616
  Receipt Date: 20160804
  Transmission Date: 20161109
  Serious: Yes (Hospitalization, Other)
  Sender: FDA-Public Use
  Company Number: GB-009507513-1506GBR007113

PATIENT
  Age: 2 Day
  Sex: Male
  Weight: 3.3 kg

DRUGS (4)
  1. DESFLURANE. [Concomitant]
     Active Substance: DESFLURANE
     Indication: GENERAL ANAESTHESIA
     Dosage: 4-6%
  2. REMIFENTANIL HYDROCHLORIDE [Concomitant]
     Active Substance: REMIFENTANIL HYDROCHLORIDE
     Indication: GENERAL ANAESTHESIA
     Dosage: 0.1-0.2 MICROGRAM/KG/MIN, INFUSION
  3. ROCURONIUM BROMIDE. [Suspect]
     Active Substance: ROCURONIUM BROMIDE
     Indication: GENERAL ANAESTHESIA
     Dosage: INFUSION AT 1 MG/KG FOR THE FIRST 3 HOURS OF THE PROCEDURE, THEN AT 0.5 MG/KG FOR A FURTHER HOUR
     Route: 041
  4. SUGAMMADEX SODIUM [Suspect]
     Active Substance: SUGAMMADEX SODIUM
     Indication: NEUROMUSCULAR BLOCKADE REVERSAL
     Dosage: 16 MG/KG, UNK

REACTIONS (4)
  - Hypotonia [Recovered/Resolved]
  - Off label use [Unknown]
  - Pupil fixed [Recovered/Resolved]
  - Drug effect prolonged [Recovered/Resolved]
